FAERS Safety Report 7161237-4 (Version None)
Quarter: 2010Q4

REPORT INFORMATION
  Report Type: 
  Country: None (occurrence: None)
  Receive Date: 20101201
  Receipt Date: 20101124
  Transmission Date: 20110411
  Serious: Yes (Hospitalization)
  Sender: FDA-Public Use
  Company Number: 2010SP061649

PATIENT
  Age: 54 Year
  Sex: Female

DRUGS (9)
  1. TEMODAL [Suspect]
     Indication: GLIOBLASTOMA MULTIFORME
     Dates: start: 20100101
  2. MOVICOL [Concomitant]
  3. ACETAMINOPHEN [Concomitant]
  4. BETAPRED [Concomitant]
  5. TENORMIN [Concomitant]
  6. SPIRONOLAKTON [Concomitant]
  7. KEPPRA [Concomitant]
  8. NEXIUM [Concomitant]
  9. NOVORAPID FLEXPEN [Concomitant]

REACTIONS (3)
  - DIZZINESS [None]
  - PULMONARY EMBOLISM [None]
  - VOMITING [None]
